FAERS Safety Report 4929606-8 (Version None)
Quarter: 2006Q1

REPORT INFORMATION
  Report Type: 
  Country: None (occurrence: None)
  Receive Date: 20060127
  Receipt Date: 20051110
  Transmission Date: 20060701
  Serious: Yes (Other)
  Sender: FDA-Public Use
  Company Number: 2005155686

PATIENT
  Age: 27 Year
  Sex: Female
  Weight: 61.2356 kg

DRUGS (7)
  1. LYRICA [Suspect]
     Indication: NEURALGIA
     Dosage: 150 MG (50 MG, 3 IN 1 D), ORAL
     Route: 048
     Dates: start: 20051101
  2. MORPHINE SULFATE [Concomitant]
  3. MORPHINE SULFATE [Concomitant]
  4. MONTELUKAST SODIUM [Concomitant]
  5. PAXIL [Concomitant]
  6. EUGYNON (ETHINYLESTRADIOL, LEVONORGESTREL) [Concomitant]
  7. LEVOTHROID [Concomitant]

REACTIONS (1)
  - VISUAL DISTURBANCE [None]
